FAERS Safety Report 4277917-4 (Version None)
Quarter: 2004Q1

REPORT INFORMATION
  Report Type: 
  Country: None (occurrence: None)
  Receive Date: 20040121
  Receipt Date: 20030516
  Transmission Date: 20041129
  Serious: Yes (Other)
  Sender: FDA-Public Use
  Company Number: 2003-05-2394

PATIENT
  Age: 37 Year
  Sex: Female

DRUGS (1)
  1. SUBUTEX [Suspect]
     Indication: DRUG DEPENDENCE
     Route: 042

REACTIONS (5)
  - HIV TEST POSITIVE [None]
  - MEDICATION ERROR [None]
  - OEDEMA PERIPHERAL [None]
  - SKIN NODULE [None]
  - THROMBOPHLEBITIS [None]
